FAERS Safety Report 5029143-9 (Version None)
Quarter: 2006Q2

REPORT INFORMATION
  Report Type: 
  Country: None (occurrence: None)
  Receive Date: 20060613
  Receipt Date: 20060601
  Transmission Date: 20061013
  Serious: Yes (Death, Life-Threatening, Hospitalization, Other)
  Sender: FDA-Public Use
  Company Number: 2005-08-1718

PATIENT
  Age: 42 Year
  Sex: Male
  Weight: 75 kg

DRUGS (8)
  1. TEMODAL [Suspect]
     Indication: OLIGODENDROGLIOMA
     Dosage: 150 MG QD; ORAL
     Route: 048
     Dates: start: 20050628, end: 20050728
  2. RADIATION THERAPY [Suspect]
     Indication: OLIGODENDROGLIOMA
     Dates: start: 20060628
  3. PANTOPRAZOLE SODIUM TABLETS [Concomitant]
  4. DEXAMETHASONE [Concomitant]
  5. GRANISETRON TABLETS [Concomitant]
  6. PROCHLORPERAZINE TABLETS [Concomitant]
  7. EMPRACET TABLETS [Concomitant]
  8. SENNOSIDE A+B TABLETS [Concomitant]

REACTIONS (19)
  - APLASTIC ANAEMIA [None]
  - ARTHRALGIA [None]
  - BACTERIAL SEPSIS [None]
  - BONE MARROW FAILURE [None]
  - FUSARIUM INFECTION [None]
  - GENERAL PHYSICAL HEALTH DETERIORATION [None]
  - HAEMOPTYSIS [None]
  - MORAXELLA INFECTION [None]
  - MYALGIA [None]
  - NAUSEA [None]
  - PANCYTOPENIA [None]
  - PHARYNGEAL CANDIDIASIS [None]
  - PHARYNGOLARYNGEAL PAIN [None]
  - RENAL FAILURE CHRONIC [None]
  - RESPIRATORY DISTRESS [None]
  - SEPTIC EMBOLUS [None]
  - SKIN LESION [None]
  - SKIN NODULE [None]
  - VOMITING [None]
